FAERS Safety Report 5644256-6 (Version None)
Quarter: 2008Q1

REPORT INFORMATION
  Report Type: 
  Country: None (occurrence: None)
  Receive Date: 20080227
  Receipt Date: 20080219
  Transmission Date: 20080703
  Serious: Yes (Death)
  Sender: FDA-Public Use
  Company Number: 2007US000450

PATIENT
  Age: 51 Year
  Sex: Male
  Weight: 90.2 kg

DRUGS (26)
  1. PROGRAF [Suspect]
     Indication: PROPHYLAXIS AGAINST TRANSPLANT REJECTION
     Dosage: 1 MG, BID, ORAL
     Route: 048
     Dates: start: 20050309, end: 20061103
  2. IMURAN [Concomitant]
  3. AMBIEN [Concomitant]
  4. PREDNISONE TAB [Concomitant]
  5. KLONOPIN [Concomitant]
  6. NASONEX (MOMETASONE FUROATE) NASAL SPRAY [Concomitant]
  7. SEROQUEL TABLET [Concomitant]
  8. PROVIGIL [Concomitant]
  9. NEURONTIN [Concomitant]
  10. ZOLOFT [Concomitant]
  11. AFRIN NASAL DECONGESTANT (PHENYLEPHRINE HYDROCHLORIDE) NASAL DROP [Concomitant]
  12. SALINE (SODIUM CHLORIDE) SPRAY [Concomitant]
  13. CARDIZEM CD [Concomitant]
  14. FLORINEF ACETATE (FLUDROCORTISONE ACETATE) TABLET [Concomitant]
  15. COLACE (DOCUSATE SODIUM) CAPSULE [Concomitant]
  16. CALCIUM CARBONATE W/VITAMIN D NOS (VITAMIN D NOS) TABLET [Concomitant]
  17. LIPITOR [Concomitant]
  18. SPORANOX (ITRACONAZOLE) CAPSULE [Concomitant]
  19. ZINC SULFATE (ZINC SULFATE) CAPSULE [Concomitant]
  20. REGLAN [Concomitant]
  21. MULTIVITAMIN (VITAMIN NOS) TABLET [Concomitant]
  22. FOLIC ACID [Concomitant]
  23. FERROUS SULFATE TAB [Concomitant]
  24. ASPIRIN CHEWABLE TABLET [Concomitant]
  25. NYSTATIN (NYSTATIN) SUSPENSION [Concomitant]
  26. RANITIDINE HYDROCHLORIDE [Concomitant]

REACTIONS (13)
  - ABDOMINAL DISTENSION [None]
  - BACK PAIN [None]
  - CHEST PAIN [None]
  - CHILLS [None]
  - COUGH [None]
  - IMMUNOSUPPRESSION [None]
  - INFECTION IN AN IMMUNOCOMPROMISED HOST [None]
  - LACRIMATION INCREASED [None]
  - MALAISE [None]
  - NASAL CONGESTION [None]
  - RESPIRATORY ARREST [None]
  - RHINORRHOEA [None]
  - URINE OUTPUT DECREASED [None]
